FAERS Safety Report 8424168-5 (Version None)
Quarter: 2012Q2

REPORT INFORMATION
  Report Type: 
  Country: None (occurrence: None)
  Receive Date: 20120608
  Receipt Date: 20120125
  Transmission Date: 20120825
  Serious: No
  Sender: FDA-Public Use
  Company Number: US-ASTRAZENECA-2012SE05555

PATIENT
  Age: 73 Year
  Sex: Female
  Weight: 56.7 kg

DRUGS (6)
  1. SEREVENT [Concomitant]
  2. PAXIL [Concomitant]
  3. THYROID HORMONE [Concomitant]
  4. PULMICORT FLEXHALER [Suspect]
     Indication: ASTHMA
     Dosage: 2 PUFFS, ONCE A DAY
     Route: 055
  5. SEROQUEL [Suspect]
     Indication: SLEEP DISORDER
     Route: 048
  6. CLARITIN [Concomitant]

REACTIONS (3)
  - OFF LABEL USE [None]
  - INAPPROPRIATE SCHEDULE OF DRUG ADMINISTRATION [None]
  - URTICARIA [None]
